FAERS Safety Report 15319073 (Version 3)
Quarter: 2018Q4

REPORT INFORMATION
  Report Type: Spontaneous
  Country: US (occurrence: US)
  Receive Date: 20180826
  Receipt Date: 20181101
  Transmission Date: 20190204
  Serious: Yes (Hospitalization, Other)
  Sender: FDA-Public Use
  Company Number: US-PRINSTON PHARMACEUTICAL INC.-2018PRN00919

PATIENT
  Age: 54 Year
  Sex: Male
  Weight: 94.79 kg

DRUGS (13)
  1. FENOFIBRATE. [Concomitant]
     Active Substance: FENOFIBRATE
  2. ZOLPIDEM [Concomitant]
     Active Substance: ZOLPIDEM\ZOLPIDEM TARTRATE
  3. LEVOTHYROXINE. [Concomitant]
     Active Substance: LEVOTHYROXINE
  4. METFORMIN [Suspect]
     Active Substance: METFORMIN HYDROCHLORIDE
  5. VITAMIN D [Concomitant]
     Active Substance: CHOLECALCIFEROL
  6. TOPIRAMATE. [Concomitant]
     Active Substance: TOPIRAMATE
  7. ATORVASTATIN [Concomitant]
     Active Substance: ATORVASTATIN
  8. NOVOLOG [Concomitant]
     Active Substance: INSULIN ASPART
  9. BASAGLAR [Concomitant]
     Active Substance: INSULIN GLARGINE
  10. HYDROXYZINE [Concomitant]
     Active Substance: HYDROXYZINE HYDROCHLORIDE
  11. VALSARTAN. [Suspect]
     Active Substance: VALSARTAN
     Indication: HYPERTENSION
     Dosage: 160 MG, 1X/DAY
     Route: 048
     Dates: start: 2018, end: 2018
  12. FLUOXETINE [Concomitant]
     Active Substance: FLUOXETINE HYDROCHLORIDE
  13. VALSARTAN. [Suspect]
     Active Substance: VALSARTAN
     Indication: HYPERTENSION
     Dosage: 320 MG, 1X/DAY
     Route: 048
     Dates: start: 2018, end: 2018

REACTIONS (31)
  - Mania [Recovered/Resolved]
  - Platelet count decreased [Recovered/Resolved]
  - Dissociation [Not Recovered/Not Resolved]
  - Migraine [Not Recovered/Not Resolved]
  - Coordination abnormal [Not Recovered/Not Resolved]
  - Treatment noncompliance [Not Recovered/Not Resolved]
  - Pain in extremity [Not Recovered/Not Resolved]
  - Anxiety [Unknown]
  - Oropharyngeal pain [Not Recovered/Not Resolved]
  - Chest discomfort [Unknown]
  - Immobile [Not Recovered/Not Resolved]
  - Loss of consciousness [Unknown]
  - Ill-defined disorder [Unknown]
  - Muscle twitching [Not Recovered/Not Resolved]
  - Dyskinesia [Not Recovered/Not Resolved]
  - Peripheral swelling [Unknown]
  - Thrombocytopenia [Unknown]
  - Presyncope [Unknown]
  - Dizziness [Recovering/Resolving]
  - Balance disorder [Not Recovered/Not Resolved]
  - Fall [Recovering/Resolving]
  - Incorrect dose administered [Unknown]
  - Chest pain [Unknown]
  - Muscle spasms [Not Recovered/Not Resolved]
  - Panic attack [Unknown]
  - Urinary incontinence [Recovering/Resolving]
  - Headache [Not Recovered/Not Resolved]
  - Vertigo [Unknown]
  - Visual impairment [Not Recovered/Not Resolved]
  - Nausea [Unknown]
  - Asthenia [Unknown]

NARRATIVE: CASE EVENT DATE: 2018
